FAERS Safety Report 5661107-4 (Version None)
Quarter: 2008Q1

REPORT INFORMATION
  Report Type: 
  Country: None (occurrence: None)
  Receive Date: 20080305
  Receipt Date: 20080226
  Transmission Date: 20080703
  Serious: Yes (Hospitalization)
  Sender: FDA-Public Use
  Company Number: CHPA2008US02079

PATIENT
  Sex: Male

DRUGS (2)
  1. NICOTINE [Suspect]
     Indication: SMOKING CESSATION THERAPY
     Dosage: 21 MG, QD, TRANSDERMAL; 14 MG, QD, TRANSDERMAL; 14 MG, QD, TRANSDERMAL
     Route: 062
     Dates: start: 20080127, end: 20080201
  2. NICOTINE [Suspect]
     Indication: SMOKING CESSATION THERAPY
     Dosage: 21 MG, QD, TRANSDERMAL; 14 MG, QD, TRANSDERMAL; 14 MG, QD, TRANSDERMAL
     Route: 062
     Dates: start: 20080203

REACTIONS (2)
  - CARDIAC FAILURE CONGESTIVE [None]
  - CONCOMITANT DISEASE AGGRAVATED [None]
